FAERS Safety Report 4839055-9 (Version None)
Quarter: 2005Q4

REPORT INFORMATION
  Report Type: 
  Country: None (occurrence: None)
  Receive Date: 20051031
  Receipt Date: 20050919
  Transmission Date: 20060501
  Serious: No
  Sender: FDA-Public Use
  Company Number: 200516605US

PATIENT
  Age: 42 Year
  Sex: Female
  Weight: 60 kg

DRUGS (3)
  1. KETEK [Suspect]
     Indication: SINUSITIS
     Dosage: 800 X 5 DAYS MG QD  PO
     Route: 048
     Dates: start: 20050915, end: 20050915
  2. XANAX [Concomitant]
  3. HYDROCODONE [Concomitant]

REACTIONS (4)
  - COLOUR BLINDNESS [None]
  - PHOTOPSIA [None]
  - VISION BLURRED [None]
  - VISUAL DISTURBANCE [None]
